FAERS Safety Report 8275798-5 (Version None)
Quarter: 2012Q2

REPORT INFORMATION
  Report Type: 
  Country: None (occurrence: None)
  Receive Date: 20120410
  Receipt Date: 20120410
  Transmission Date: 20120825
  Serious: Yes (Life-Threatening, Hospitalization)
  Sender: FDA-Public Use
  Company Number: None

PATIENT
  Age: 79 Year
  Sex: Male
  Weight: 66 kg

DRUGS (2)
  1. METRONIDAZOLE [Suspect]
     Indication: UROSEPSIS
     Dosage: 500 MG TID PO
     Route: 048
     Dates: start: 20111129, end: 20111205
  2. PIPERACILLIN AND TAZOBACTAM [Suspect]
     Indication: UROSEPSIS
     Dosage: 4.5 GM QID IV
     Route: 042
     Dates: start: 20111122, end: 20111205

REACTIONS (4)
  - LEUKOPENIA [None]
  - NAUSEA [None]
  - VOMITING [None]
  - NEUTROPENIA [None]
